FAERS Safety Report 4659743-7 (Version None)
Quarter: 2005Q2

REPORT INFORMATION
  Report Type: 
  Country: None (occurrence: None)
  Receive Date: 20050510
  Receipt Date: 20041117
  Transmission Date: 20051028
  Serious: Yes (Hospitalization)
  Sender: FDA-Public Use
  Company Number: 2004BI000022

PATIENT
  Age: 43 Year
  Sex: Male

DRUGS (1)
  1. AVONEX [Suspect]
     Indication: MULTIPLE SCLEROSIS
     Dosage: 30 UG;QW; IM
     Route: 030
     Dates: start: 20031101

REACTIONS (7)
  - CONCUSSION [None]
  - HALLUCINATION [None]
  - INJURY [None]
  - PARANOIA [None]
  - SKIN LACERATION [None]
  - THERMAL BURN [None]
  - VICTIM OF CRIME [None]
